FAERS Safety Report 7552417-4 (Version None)
Quarter: 2011Q2

REPORT INFORMATION
  Report Type: 
  Country: None (occurrence: None)
  Receive Date: 20110616
  Receipt Date: 20110608
  Transmission Date: 20111010
  Serious: Yes (Other)
  Sender: FDA-Public Use
  Company Number: JP-PFIZER INC-2011128945

PATIENT
  Age: 86 Year
  Sex: Male
  Weight: 54 kg

DRUGS (2)
  1. ZOSYN [Suspect]
     Indication: PNEUMONIA
     Dosage: 4.5 G, 3X/DAY
     Route: 041
     Dates: start: 20110521, end: 20110527
  2. AMINO ACIDS/ELECTROLYTES/GLUCOSE/VITAMINS [Concomitant]
     Route: 041

REACTIONS (2)
  - ALTERED STATE OF CONSCIOUSNESS [None]
  - HYPERNATRAEMIA [None]
